FAERS Safety Report 12389617 (Version 3)
Quarter: 2016Q2

REPORT INFORMATION
  Report Type: Report from Study
  Country: JP (occurrence: JP)
  Receive Date: 20160520
  Receipt Date: 20160629
  Transmission Date: 20160815
  Serious: No
  Sender: FDA-Public Use
  Company Number: JP-EISAI MEDICAL RESEARCH-EC-2016-016983

PATIENT
  Age: 21 Year
  Sex: Male
  Weight: 73 kg

DRUGS (11)
  1. INOVELON [Suspect]
     Active Substance: RUFINAMIDE
     Route: 048
     Dates: start: 20140204, end: 20140217
  2. INOVELON [Suspect]
     Active Substance: RUFINAMIDE
     Route: 048
     Dates: start: 20140124, end: 20140203
  3. INOVELON [Suspect]
     Active Substance: RUFINAMIDE
     Route: 048
     Dates: start: 20140318, end: 20140331
  4. INOVELON [Suspect]
     Active Substance: RUFINAMIDE
     Route: 048
     Dates: start: 20140415, end: 20140428
  5. HYDANTOL [Concomitant]
     Active Substance: PHENYTOIN SODIUM
  6. VIGABATRIN [Concomitant]
     Active Substance: VIGABATRIN
  7. OSPOLOT [Concomitant]
     Active Substance: SULTHIAME
  8. INOVELON [Suspect]
     Active Substance: RUFINAMIDE
     Route: 048
     Dates: start: 20140401, end: 20140414
  9. ALEVIATIN [Concomitant]
     Active Substance: PHENYTOIN SODIUM
  10. INOVELON [Suspect]
     Active Substance: RUFINAMIDE
     Indication: EPILEPSY
     Route: 048
     Dates: start: 20140109, end: 20140123
  11. INOVELON [Suspect]
     Active Substance: RUFINAMIDE
     Route: 048
     Dates: start: 20140218, end: 20140317

REACTIONS (1)
  - Seizure [Recovered/Resolved]

NARRATIVE: CASE EVENT DATE: 20140303
